FAERS Safety Report 6329883-5 (Version None)
Quarter: 2009Q3

REPORT INFORMATION
  Report Type: 
  Country: None (occurrence: None)
  Receive Date: 20090826
  Receipt Date: 20090817
  Transmission Date: 20100115
  Serious: Yes (Disabling, Other)
  Sender: FDA-Public Use
  Company Number: JP-ABBOTT-09P-087-0590262-00

PATIENT
  Sex: Female
  Weight: 41 kg

DRUGS (21)
  1. HUMIRA [Suspect]
     Indication: RHEUMATOID ARTHRITIS
     Route: 058
     Dates: start: 20090427, end: 20090706
  2. ETHAMBUTOL HYDROCHLORIDE [Suspect]
     Indication: MYCOBACTERIUM AVIUM COMPLEX INFECTION
     Route: 048
     Dates: start: 20080704
  3. ETHAMBUTOL HYDROCHLORIDE [Suspect]
     Route: 048
     Dates: start: 20080821
  4. ETHAMBUTOL HYDROCHLORIDE [Suspect]
     Dates: start: 20081113
  5. ETHAMBUTOL HYDROCHLORIDE [Suspect]
     Dates: start: 20090402, end: 20090703
  6. PREDNISOLONE [Concomitant]
     Indication: RHEUMATOID ARTHRITIS
     Route: 048
     Dates: end: 20090621
  7. PREDNISOLONE [Concomitant]
     Route: 048
     Dates: start: 20090622, end: 20090809
  8. PREDNISOLONE [Concomitant]
     Route: 048
     Dates: start: 20090810
  9. ALFACALCIDOL [Concomitant]
     Indication: OSTEOPOROSIS
     Route: 048
  10. MOSAPRIDE CITRATE HYDRATE [Concomitant]
     Indication: GASTROINTESTINAL DISORDER
     Route: 048
  11. CLARITHROMYCIN [Concomitant]
     Indication: MYCOBACTERIUM AVIUM COMPLEX INFECTION
     Route: 048
     Dates: end: 20090809
  12. RIFAMPICIN [Concomitant]
     Indication: MYCOBACTERIUM AVIUM COMPLEX INFECTION
     Route: 048
     Dates: end: 20090715
  13. DICLOFENAC SODIUM [Concomitant]
     Indication: RHEUMATOID ARTHRITIS
     Route: 048
     Dates: end: 20090722
  14. MISOPROSTOL [Concomitant]
     Indication: ADVERSE EVENT
     Route: 048
     Dates: end: 20090722
  15. COUGHCODE-N [Concomitant]
     Indication: ANTITUSSIVE THERAPY
     Route: 048
  16. LEVOFLOXACIN HYDRATE [Concomitant]
     Indication: MYCOBACTERIUM AVIUM COMPLEX INFECTION
     Route: 048
  17. SULFAMETHOXAZOLE AND TRIMETHOPRIM [Concomitant]
     Indication: ANTIBIOTIC PROPHYLAXIS
     Route: 048
  18. ALENDRONATE SODIUM [Concomitant]
     Indication: OSTEOPOROSIS
  19. METHOTREXATE [Concomitant]
     Indication: RHEUMATOID ARTHRITIS
     Route: 048
  20. FOLIC ACID [Concomitant]
     Indication: PROPHYLAXIS
     Route: 048
  21. FOLIC ACID [Concomitant]
     Indication: ADVERSE DRUG REACTION

REACTIONS (1)
  - VISUAL IMPAIRMENT [None]
